FAERS Safety Report 9169071 (Version 1)
Quarter: 2013Q1

REPORT INFORMATION
  Report Type: Spontaneous
  Country: US (occurrence: None)
  Receive Date: 20130314
  Receipt Date: 20130314
  Transmission Date: 20140127
  Serious: Yes (Hospitalization)
  Sender: FDA-Public Use
  Company Number: None

PATIENT
  Age: 37 Year
  Sex: Female
  Weight: 68.04 kg

DRUGS (1)
  1. ZITHROMAX [Suspect]
     Indication: SINUSITIS
     Dosage: 1
     Dates: start: 20130122, end: 20130126

REACTIONS (6)
  - Syncope [None]
  - Convulsion [None]
  - Fall [None]
  - Head injury [None]
  - Brugada syndrome [None]
  - Heart rate increased [None]
